FAERS Safety Report 13504741 (Version 2)
Quarter: 2017Q3

REPORT INFORMATION
  Report Type: Spontaneous
  Country: US (occurrence: US)
  Receive Date: 20170502
  Receipt Date: 20170724
  Transmission Date: 20171127
  Serious: No
  Sender: FDA-Public Use
  Company Number: US-IMPAX LABORATORIES, INC-2017-IPXL-00299

PATIENT
  Age: 63 Year
  Sex: Female
  Weight: 57 kg

DRUGS (9)
  1. RYTARY [Suspect]
     Active Substance: CARBIDOPA\LEVODOPA
     Indication: PARKINSON^S DISEASE
     Dosage: 36.25/145 MG, 3 CAPSULES, 3 TIMES DAILY, 6 HOURS APART
     Route: 048
     Dates: start: 20170111, end: 201701
  2. VITAMIN B-COMPLEX [Concomitant]
     Active Substance: DEXPANTHENOL\NIACINAMIDE\PYRIDOXINE HYDROCHLORIDE\RIBOFLAVIN 5^-PHOSPHATE SODIUM\THIAMINE HYDROCHLORIDE
     Indication: VITAMIN B12 DEFICIENCY
     Dosage: UNK
     Route: 065
     Dates: start: 20170125
  3. PRAMIPEXOLE. [Concomitant]
     Active Substance: PRAMIPEXOLE
     Indication: PARKINSON^S DISEASE
     Dosage: 0.75 MG, 3 /DAY
     Route: 065
     Dates: start: 201601
  4. PRIMIDONE. [Concomitant]
     Active Substance: PRIMIDONE
     Indication: TREMOR
     Dosage: 50 MG, BEDTIME
     Route: 065
     Dates: start: 201601
  5. ZOLOFT [Concomitant]
     Active Substance: SERTRALINE HYDROCHLORIDE
     Indication: DEPRESSION
     Dosage: 75 MG, 1 /DAY
     Route: 065
     Dates: start: 2016
  6. CALCIUM [Concomitant]
     Active Substance: CALCIUM
     Indication: OSTEOPOROSIS
     Dosage: UNK
     Route: 065
  7. VITAMIN D3 [Concomitant]
     Active Substance: CHOLECALCIFEROL
     Indication: OSTEOPOROSIS
     Dosage: UNK
     Route: 065
  8. FOLIC ACID. [Concomitant]
     Active Substance: FOLIC ACID
     Indication: PARKINSON^S DISEASE
     Dosage: UNK
     Route: 065
  9. RYTARY [Suspect]
     Active Substance: CARBIDOPA\LEVODOPA
     Dosage: 36.25/145 MG, 2 CAPSULES, 3 TIMES DAILY
     Route: 048
     Dates: start: 20170123

REACTIONS (11)
  - Muscle tightness [Recovering/Resolving]
  - Bradykinesia [Recovering/Resolving]
  - Hypersomnia [Unknown]
  - Dizziness [Recovering/Resolving]
  - Therapeutic response shortened [Unknown]
  - Gastrointestinal disorder [Recovering/Resolving]
  - Dyskinesia [Recovering/Resolving]
  - Tremor [Recovering/Resolving]
  - Drug dose omission [Unknown]
  - Condition aggravated [Recovering/Resolving]
  - Balance disorder [Recovering/Resolving]

NARRATIVE: CASE EVENT DATE: 20170117
